FAERS Safety Report 6356421-3 (Version None)
Quarter: 2009Q3

REPORT INFORMATION
  Report Type: 
  Country: None (occurrence: None)
  Receive Date: 20090915
  Receipt Date: 20090903
  Transmission Date: 20100115
  Serious: Yes (Hospitalization)
  Sender: FDA-Public Use
  Company Number: US-ELI_LILLY_AND_COMPANY-US200909002703

PATIENT
  Sex: Male
  Weight: 104.31 kg

DRUGS (2)
  1. BYETTA [Suspect]
     Indication: TYPE 2 DIABETES MELLITUS
     Dosage: 5 UG, 2/D
     Route: 058
     Dates: start: 20050101, end: 20050101
  2. BYETTA [Suspect]
     Dosage: 10 UG, 2/D
     Route: 058
     Dates: start: 20050101

REACTIONS (10)
  - AMPUTATION [None]
  - DECREASED APPETITE [None]
  - IMPAIRED HEALING [None]
  - POOR PERIPHERAL CIRCULATION [None]
  - PROCEDURAL PAIN [None]
  - SKIN DISCOLOURATION [None]
  - SURGERY [None]
  - WEIGHT DECREASED [None]
  - WEIGHT INCREASED [None]
  - WOUND [None]
